FAERS Safety Report 7207838-6 (Version None)
Quarter: 2010Q4

REPORT INFORMATION
  Report Type: 
  Country: None (occurrence: None)
  Receive Date: 20101221
  Receipt Date: 20101206
  Transmission Date: 20110411
  Serious: Yes (Other)
  Sender: FDA-Public Use
  Company Number: 1000017734

PATIENT
  Sex: Male

DRUGS (3)
  1. ESCITALOPRAM [Suspect]
     Indication: DEPRESSION
     Dosage: 10 MG (10 MG, 1 IN 1 D), ORAL
     Route: 048
  2. NEXIUM [Suspect]
  3. LEXOMIL (BROMAZEPAM) (BROMAZEPAM) [Concomitant]

REACTIONS (3)
  - CRYING [None]
  - HYPERSENSITIVITY [None]
  - TUBULOINTERSTITIAL NEPHRITIS [None]
